FAERS Safety Report 12302069 (Version 1)
Quarter: 2016Q2

REPORT INFORMATION
  Report Type: Spontaneous
  Country: US (occurrence: US)
  Receive Date: 20160425
  Receipt Date: 20160425
  Transmission Date: 20160815
  Serious: No
  Sender: FDA-Public Use
  Company Number: US-BAYER-2016-070272

PATIENT
  Sex: Female

DRUGS (3)
  1. MIRALAX [Suspect]
     Active Substance: POLYETHYLENE GLYCOL 3350
     Dosage: UNK
     Route: 048
     Dates: start: 20160306
  2. KONSYL [Suspect]
     Active Substance: PSYLLIUM HUSK
     Dosage: UNK
  3. LINZESS [Concomitant]
     Active Substance: LINACLOTIDE
     Dosage: UNK

REACTIONS (4)
  - Drug effect incomplete [None]
  - Product use issue [None]
  - Diarrhoea [None]
  - Product use issue [None]

NARRATIVE: CASE EVENT DATE: 20160306
